FAERS Safety Report 9559709 (Version 1)
Quarter: 2013Q3

REPORT INFORMATION
  Report Type: Spontaneous
  Country: US (occurrence: None)
  Receive Date: 20130913
  Receipt Date: 20130913
  Transmission Date: 20140515
  Serious: Yes (Other)
  Sender: FDA-Public Use
  Company Number: 1000045377

PATIENT
  Sex: Male

DRUGS (2)
  1. DALIRESP [Suspect]
  2. DALIRESP [Suspect]

REACTIONS (1)
  - Tremor [None]
